FAERS Safety Report 6749384-X (Version None)
Quarter: 2010Q2

REPORT INFORMATION
  Report Type: 
  Country: None (occurrence: None)
  Receive Date: 20100601
  Receipt Date: 20100527
  Transmission Date: 20101027
  Serious: Yes (Hospitalization)
  Sender: FDA-Public Use
  Company Number: FR-ROCHE-704477

PATIENT
  Sex: Female

DRUGS (3)
  1. TAMIFLU [Suspect]
     Dosage: NO INFORMATION OR UNINTERPRETABLE RE-CHALLENGE
     Route: 048
     Dates: start: 20091229, end: 20100102
  2. HALDOL [Concomitant]
     Route: 048
  3. HALDOL [Concomitant]
     Route: 048

REACTIONS (1)
  - DELIRIUM [None]
